FAERS Safety Report 21586896 (Version 1)
Quarter: 2022Q4

REPORT INFORMATION
  Report Type: Spontaneous
  Country: US (occurrence: None)
  Receive Date: 20221110
  Receipt Date: 20221110
  Transmission Date: 20230113
  Serious: Yes (Hospitalization)
  Sender: FDA-Public Use
  Company Number: None

PATIENT
  Sex: Female

DRUGS (10)
  1. XOLAIR [Suspect]
     Active Substance: OMALIZUMAB
     Indication: Asthma
     Dosage: 150 MG/ML??INJECT 2 SYRINGES UNDER THE SKIN (SUBCUTANEOUS INJECTION) EVERY FOUR WEEKS?
     Route: 058
     Dates: start: 20190423
  2. BUSPIRONE TAB [Concomitant]
  3. CYCLOBENZAPR TAB [Concomitant]
  4. HYDROXYZINE POW HCL [Concomitant]
  5. LORATADINE TAB [Concomitant]
  6. PANTOPRAZOLE INJ SOD [Concomitant]
  7. RANITIDINE TAB [Concomitant]
  8. SENEXON-S TAB [Concomitant]
  9. SINGULAIR TAB [Concomitant]
  10. TRIAMTERENE POW [Concomitant]

REACTIONS (2)
  - Road traffic accident [None]
  - Upper limb fracture [None]
